FAERS Safety Report 7126557-8 (Version None)
Quarter: 2010Q4

REPORT INFORMATION
  Report Type: 
  Country: None (occurrence: None)
  Receive Date: 20101129
  Receipt Date: 20101120
  Transmission Date: 20110411
  Serious: Yes (Hospitalization)
  Sender: FDA-Public Use
  Company Number: US-PFIZER INC-2010153752

PATIENT
  Sex: Female
  Weight: 78 kg

DRUGS (4)
  1. LIPITOR [Suspect]
     Indication: BLOOD CHOLESTEROL INCREASED
     Dosage: UNK
     Dates: start: 19980101, end: 20080101
  2. CLONIDINE [Concomitant]
     Dosage: UNK
  3. NIFEDIPINE [Concomitant]
     Dosage: UNK
  4. HYDROCHLOROTHIAZIDE [Concomitant]
     Dosage: UNK

REACTIONS (2)
  - BLOOD CREATININE INCREASED [None]
  - MUSCLE ATROPHY [None]
